FAERS Safety Report 25173664 (Version 1)
Quarter: 2025Q2

REPORT INFORMATION
  Report Type: Spontaneous
  Country: RO (occurrence: RO)
  Receive Date: 20250408
  Receipt Date: 20250408
  Transmission Date: 20250717
  Serious: Yes (Hospitalization, Other)
  Sender: NOVARTIS
  Company Number: None

PATIENT
  Age: 67 Year
  Sex: Female
  Weight: 64 kg

DRUGS (2)
  1. KISQALI [Suspect]
     Active Substance: RIBOCICLIB
     Indication: Breast neoplasm
     Route: 048
     Dates: start: 20241220, end: 20250318
  2. FULVESTRANT [Concomitant]
     Active Substance: FULVESTRANT
     Indication: Breast cancer metastatic
     Route: 030
     Dates: start: 20241220

REACTIONS (5)
  - Asthenia [Recovered/Resolved]
  - Chest pain [Recovered/Resolved]
  - Dyspnoea [Recovered/Resolved]
  - Extrasystoles [Recovered/Resolved]
  - Arrhythmia [Recovered/Resolved]

NARRATIVE: CASE EVENT DATE: 20250315
